FAERS Safety Report 25024239 (Version 1)
Quarter: 2025Q1

REPORT INFORMATION
  Report Type: Spontaneous
  Country: US (occurrence: None)
  Receive Date: 20250228
  Receipt Date: 20250228
  Transmission Date: 20250408
  Serious: Yes (Life-Threatening)
  Sender: FDA-CTU
  Company Number: None

PATIENT
  Age: 53 Year
  Sex: Male
  Weight: 106 kg

DRUGS (1)
  1. PROTAMINE SULFATE [Suspect]
     Active Substance: PROTAMINE SULFATE
     Indication: Procoagulant therapy
     Route: 042
     Dates: start: 20241125, end: 20241125

REACTIONS (5)
  - Nausea [None]
  - Unresponsive to stimuli [None]
  - Cardiac arrest [None]
  - Heart rate increased [None]
  - Vomiting [None]

NARRATIVE: CASE EVENT DATE: 20241125
